FAERS Safety Report 16796133 (Version 1)
Quarter: 2019Q3

REPORT INFORMATION
  Report Type: Spontaneous
  Country: US (occurrence: US)
  Receive Date: 20190911
  Receipt Date: 20190911
  Transmission Date: 20191005
  Serious: Yes (Life-Threatening, Hospitalization, Other)
  Sender: FDA-Public Use
  Company Number: US-LP PHARMA-2019PRN00800

PATIENT
  Age: 23 Month
  Sex: Female

DRUGS (1)
  1. CLONIDINE HYDROCHLORIDE. [Suspect]
     Active Substance: CLONIDINE HYDROCHLORIDE
     Dosage: 8 TABLETS
     Route: 048

REACTIONS (4)
  - Pulse absent [Recovered/Resolved]
  - Depressed level of consciousness [Recovered/Resolved]
  - Accidental overdose [Recovered/Resolved]
  - Apnoea [Recovered/Resolved]
